FAERS Safety Report 18817851 (Version 3)
Quarter: 2021Q2

REPORT INFORMATION
  Report Type: Spontaneous
  Country: US (occurrence: US)
  Receive Date: 20210201
  Receipt Date: 20210621
  Transmission Date: 20210717
  Serious: Yes (Other)
  Sender: FDA-Public Use
  Company Number: US-PFIZER INC-2021075201

PATIENT
  Age: 76 Year
  Sex: Male

DRUGS (1)
  1. PRISTIQ EXTENDED?RELEASE [Suspect]
     Active Substance: DESVENLAFAXINE SUCCINATE
     Dosage: UNK

REACTIONS (5)
  - Cerebrovascular accident [Unknown]
  - Sinus node dysfunction [Unknown]
  - Cardiac disorder [Unknown]
  - Supraventricular tachycardia [Unknown]
  - Vascular dementia [Unknown]

NARRATIVE: CASE EVENT DATE: 202101
